FAERS Safety Report 21328519 (Version 7)
Quarter: 2023Q2

REPORT INFORMATION
  Report Type: Other
  Country: GB (occurrence: GB)
  Receive Date: 20220913
  Receipt Date: 20230620
  Transmission Date: 20230722
  Serious: Yes (Other)
  Sender: FDA-Public Use
  Company Number: None

PATIENT

DRUGS (12)
  1. SERTRALINE [Interacting]
     Active Substance: SERTRALINE HYDROCHLORIDE
     Indication: Product used for unknown indication
     Dosage: 100 MILLIGRAM, BID (200 MILLIGRAM, A DAY (MORNING AND EVENING) (TABLET (UNCOATED))
     Route: 048
  2. GABAPENTIN [Interacting]
     Active Substance: GABAPENTIN
     Indication: Product used for unknown indication
     Dosage: 300 MILLIGRAM, BID(4 DOSES 3 TIMES A DAY= 3,600MG), OVER 10 YEARS
     Route: 065
     Dates: end: 20191111
  3. CLONAZEPAM [Interacting]
     Active Substance: CLONAZEPAM
     Indication: Product used for unknown indication
     Dosage: 0.5 MILLIGRAM, QID (1 - 4 TIMES A DAY) (TABLET (UNCOATED)) OVER 10 YEARS
     Route: 048
     Dates: end: 20191111
  4. BACLOFEN [Interacting]
     Active Substance: BACLOFEN
     Indication: Product used for unknown indication
     Dosage: 10 MILLIGRAM, QID (1 - 4 TIMES A DAY = 40MG) (TABLET (UNCOATED)) OVER 10 YEARS
     Route: 048
     Dates: end: 20191111
  5. TRAMADOL [Interacting]
     Active Substance: TRAMADOL
     Indication: Product used for unknown indication
     Dosage: 50 MILLIGRAM, QID (1-4 TIMES A DAY = 200MG, OVER 10 YEARS)
     Route: 065
     Dates: end: 20191111
  6. ISOSORBIDE MONONITRATE [Interacting]
     Active Substance: ISOSORBIDE MONONITRATE
     Indication: Product used for unknown indication
     Dosage: 40 MILLIGRAM, BID(TABLET (UNCOATED)), MORNING AND EVENING, OVER 10 YEARS
     Route: 048
     Dates: end: 20191111
  7. ASPIRIN [Interacting]
     Active Substance: ASPIRIN
     Indication: Product used for unknown indication
     Dosage: 75 MILLIGRAM, QD (TOTAL PER DAY 4,625 MG A DAY/10 YEAR)
     Route: 065
  8. ATENOLOL [Interacting]
     Active Substance: ATENOLOL
     Indication: Product used for unknown indication
     Dosage: 100 MG, QD (TABLET (UNCOATED)), OVER 10 YEARS
     Route: 048
  9. ATORVASTATIN [Interacting]
     Active Substance: ATORVASTATIN
     Indication: Product used for unknown indication
     Dosage: 20 MG, QD (TABLET (UNCOATED)), OVER 10 YEARS
     Route: 048
  10. AMLODIPINE [Interacting]
     Active Substance: AMLODIPINE BESYLATE
     Indication: Product used for unknown indication
     Dosage: 10 MG, QD (TABLET, UNCOATED), OVER 10 YEARS
     Route: 048
  11. ALLOPURINOL [Interacting]
     Active Substance: ALLOPURINOL
     Indication: Product used for unknown indication
     Dosage: 300 MG, QD, OVER 10 YEARS
     Route: 065
  12. LISINOPRIL [Interacting]
     Active Substance: LISINOPRIL
     Indication: Product used for unknown indication
     Dosage: 20 MG, QD (TABLET (UNCOATED)), OVER 10 YEARS
     Route: 048

REACTIONS (10)
  - Confusion postoperative [Unknown]
  - Agitation postoperative [Unknown]
  - Abnormal dreams [Unknown]
  - Visual impairment [Unknown]
  - Headache [Unknown]
  - Coordination abnormal [Unknown]
  - Muscle spasms [Unknown]
  - Insomnia [Unknown]
  - Depressed mood [Unknown]
  - Drug interaction [Unknown]
